FAERS Safety Report 11873937 (Version 1)
Quarter: 2015Q4

REPORT INFORMATION
  Report Type: Report from Study
  Country: US (occurrence: US)
  Receive Date: 20151229
  Receipt Date: 20151229
  Transmission Date: 20160305
  Serious: Yes (Hospitalization)
  Sender: FDA-Public Use
  Company Number: US-AMGEN-USASL2015138574

PATIENT
  Age: 43 Year
  Sex: Female

DRUGS (1)
  1. ENBREL [Suspect]
     Active Substance: ETANERCEPT
     Indication: PSORIATIC ARTHROPATHY
     Dosage: 50 MG, QWK
     Route: 065
     Dates: start: 20150918

REACTIONS (4)
  - Musculoskeletal pain [Not Recovered/Not Resolved]
  - Back pain [Recovering/Resolving]
  - Supraventricular tachycardia [Unknown]
  - Bursitis [Unknown]

NARRATIVE: CASE EVENT DATE: 2015
